FAERS Safety Report 8941813 (Version 1)
Quarter: 2012Q4

REPORT INFORMATION
  Report Type: 
  Country: US (occurrence: US)
  Receive Date: 20121203
  Receipt Date: 20121203
  Transmission Date: 20130627
  Serious: No
  Sender: FDA-Public Use
  Company Number: US-PFIZER INC-2012302856

PATIENT
  Age: 71 Year
  Sex: Male
  Weight: 97.51 kg

DRUGS (4)
  1. LIPITOR [Suspect]
     Indication: HIGH CHOLESTEROL
     Dosage: 20 mg, UNK
     Route: 048
     Dates: start: 1999
  2. LIPITOR [Suspect]
     Dosage: 80 mg, UNK
     Route: 048
  3. LIPITOR [Suspect]
     Dosage: 40 mg, UNK
     Route: 048
  4. TRICOR [Concomitant]
     Dosage: UNK

REACTIONS (5)
  - Arthralgia [Unknown]
  - Arthralgia [Unknown]
  - Myalgia [Unknown]
  - Limb discomfort [Unknown]
  - Pain in extremity [Unknown]
